FAERS Safety Report 9861020 (Version 1)
Quarter: 2014Q1

REPORT INFORMATION
  Report Type: Spontaneous
  Country: US (occurrence: None)
  Receive Date: 20140131
  Receipt Date: 20140131
  Transmission Date: 20141002
  Serious: Yes (Other)
  Sender: FDA-Public Use
  Company Number: None

PATIENT
  Age: 60 Year
  Sex: Female
  Weight: 56.7 kg

DRUGS (1)
  1. TIROSINT [Suspect]
     Indication: THYROID DISORDER
     Dosage: 1 CAPSULE ONCE DAILY TAKEN BY MOUTH
     Route: 048
     Dates: start: 20130729, end: 20140128

REACTIONS (3)
  - Myalgia [None]
  - Feeling abnormal [None]
  - Drug hypersensitivity [None]
